FAERS Safety Report 12227595 (Version 1)
Quarter: 2016Q1

REPORT INFORMATION
  Report Type: Report from Study
  Country: GB (occurrence: GB)
  Receive Date: 20160331
  Receipt Date: 20160331
  Transmission Date: 20160526
  Serious: Yes (Hospitalization, Other)
  Sender: FDA-Public Use
  Company Number: GB-BRISTOL-MYERS SQUIBB COMPANY-BMS-2015-018018

PATIENT
  Sex: Female

DRUGS (1)
  1. ABATACEPT [Suspect]
     Active Substance: ABATACEPT
     Indication: RHEUMATOID ARTHRITIS
     Dosage: 125 MG, QWK
     Route: 058
     Dates: start: 20150113

REACTIONS (12)
  - Loss of consciousness [Unknown]
  - Abdominal abscess [Unknown]
  - Mouth ulceration [Unknown]
  - Hot flush [Unknown]
  - Nail disorder [Unknown]
  - Hyperhidrosis [Unknown]
  - Nausea [Unknown]
  - Mouth swelling [Unknown]
  - Influenza [Not Recovered/Not Resolved]
  - Headache [Unknown]
  - Drug dose omission [Unknown]
  - Rash erythematous [Unknown]
